FAERS Safety Report 5430962-5 (Version None)
Quarter: 2007Q3

REPORT INFORMATION
  Report Type: 
  Country: None (occurrence: None)
  Receive Date: 20070830
  Receipt Date: 20070828
  Transmission Date: 20080115
  Serious: Yes (Other)
  Sender: FDA-Public Use
  Company Number: A0667148A

PATIENT
  Age: 36 Year
  Sex: Female
  Weight: 78.2 kg

DRUGS (2)
  1. WELLBUTRIN SR [Suspect]
     Indication: DRUG USE FOR UNKNOWN INDICATION
     Dosage: 100MG TWICE PER DAY
     Route: 048
     Dates: start: 20070621, end: 20070719
  2. VISTARIL [Concomitant]
     Indication: DRUG USE FOR UNKNOWN INDICATION
     Dosage: 25MG AT NIGHT
     Route: 048

REACTIONS (2)
  - DRUG DEPENDENCE [None]
  - DRUG INTOLERANCE [None]
